FAERS Safety Report 20512688 (Version 1)
Quarter: 2022Q1

REPORT INFORMATION
  Report Type: Spontaneous
  Country: US (occurrence: None)
  Receive Date: 20220224
  Receipt Date: 20220224
  Transmission Date: 20220423
  Serious: Yes (Life-Threatening, Hospitalization, Other)
  Sender: FDA-Public Use
  Company Number: None

PATIENT
  Age: 46 Year
  Sex: Male
  Weight: 67.1 kg

DRUGS (1)
  1. DIVALPROEX SODIUM [Suspect]
     Active Substance: DIVALPROEX SODIUM
     Indication: Seizure
     Dosage: 250MG  5X DAILY ORAL?
     Route: 048
     Dates: start: 20160216, end: 20191115

REACTIONS (4)
  - Product substitution issue [None]
  - Seizure [None]
  - Generalised tonic-clonic seizure [None]
  - Therapeutic response changed [None]

NARRATIVE: CASE EVENT DATE: 20160216
